FAERS Safety Report 18978163 (Version 2)
Quarter: 2021Q1

REPORT INFORMATION
  Report Type: Spontaneous
  Country: GR (occurrence: GR)
  Receive Date: 20210307
  Receipt Date: 20210328
  Transmission Date: 20210420
  Serious: Yes (Disabling, Other)
  Sender: FDA-Public Use
  Company Number: GR-ORGANON-2006GRC004135

PATIENT
  Age: 37 Year
  Sex: Male

DRUGS (6)
  1. ABILIFY MAINTENA [Suspect]
     Active Substance: ARIPIPRAZOLE
     Indication: SCHIZOPHRENIA
     Dosage: UNK
     Route: 065
  2. MINITRAN [AMITRIPTYLINE HYDROCHLORIDE;PERPHENAZINE] [Suspect]
     Active Substance: AMITRIPTYLINE\PERPHENAZINE
     Indication: SCHIZOPHRENIA
     Dosage: 3 DF, QD (EVERY MORNING, AFTERNOON AND IN THE EVENING)
     Route: 065
  3. REMERON [Suspect]
     Active Substance: MIRTAZAPINE
     Indication: SLEEP DISORDER
     Dosage: 1/2 TABLET AT NIGHT
     Route: 048
  4. LIPTRUZET [Concomitant]
     Active Substance: ATORVASTATIN CALCIUM\EZETIMIBE
     Indication: BLOOD CHOLESTEROL
     Dosage: UNK, RECEIVED 10 MONTHS AGO
     Dates: start: 2020
  5. LIPTRUZET [Concomitant]
     Active Substance: ATORVASTATIN CALCIUM\EZETIMIBE
     Dosage: UNK
     Dates: start: 20210226
  6. MAGNESIUM [Concomitant]
     Active Substance: MAGNESIUM
     Indication: SUPPLEMENTATION THERAPY
     Dosage: UNK

REACTIONS (8)
  - Tachycardia [Unknown]
  - Malaise [Unknown]
  - Apnoea [Unknown]
  - Homicidal ideation [Unknown]
  - Drug ineffective [Unknown]
  - Suicidal ideation [Unknown]
  - Product use in unapproved indication [Unknown]
  - Feeling abnormal [Unknown]

NARRATIVE: CASE EVENT DATE: 202010
